FAERS Safety Report 5763200-4 (Version None)
Quarter: 2008Q2

REPORT INFORMATION
  Report Type: 
  Country: None (occurrence: None)
  Receive Date: 20080609
  Receipt Date: 20080528
  Transmission Date: 20081010
  Serious: Yes (Disabling, Other)
  Sender: FDA-Public Use
  Company Number: US-ELI_LILLY_AND_COMPANY-US200805005861

PATIENT
  Sex: Female

DRUGS (13)
  1. EVISTA [Suspect]
     Indication: PROPHYLAXIS
     Dosage: 60 MG, DAILY (1/D)
     Dates: end: 20080501
  2. EVISTA [Suspect]
     Dosage: 60 MG, DAILY (1/D)
     Dates: start: 19980101, end: 20080101
  3. CARDIAZEM [Concomitant]
     Dosage: 360 MG, UNK
  4. LIPITOR [Concomitant]
     Dosage: 40 MG, UNK
  5. ACTOS [Concomitant]
     Dosage: 15 MG, UNK
  6. LISINOPRIL [Concomitant]
     Dosage: 40 MG, UNK
  7. COLNIDIN [Concomitant]
  8. MIACALCIN [Concomitant]
     Dosage: 200 IU, UNK
  9. ASPIRIN [Concomitant]
     Dosage: 85 MG, UNK
  10. DIAMOX /00016901/ [Concomitant]
     Dosage: 250 MG, UNK
  11. CALCIUM D [Concomitant]
  12. MULTI-VITAMIN [Concomitant]
  13. GLUCOSAMINE [Concomitant]

REACTIONS (8)
  - BLINDNESS [None]
  - EYE HAEMORRHAGE [None]
  - EYE SWELLING [None]
  - LIMB INJURY [None]
  - OEDEMA PERIPHERAL [None]
  - PAIN IN EXTREMITY [None]
  - RETINAL VEIN OCCLUSION [None]
  - VISUAL DISTURBANCE [None]
